FAERS Safety Report 18596914 (Version 1)
Quarter: 2020Q4

REPORT INFORMATION
  Report Type: Spontaneous
  Country: US (occurrence: US)
  Receive Date: 20201209
  Receipt Date: 20201209
  Transmission Date: 20210114
  Serious: Yes (Life-Threatening, Hospitalization, Other)
  Sender: FDA-Public Use
  Company Number: US-BAYER-2020-263982

PATIENT
  Age: 51 Year
  Sex: Female

DRUGS (1)
  1. ACETYLSALICYLIC ACID [Suspect]
     Active Substance: ASPIRIN

REACTIONS (6)
  - Atrioventricular block complete [Recovered/Resolved]
  - Anaphylactic shock [Recovered/Resolved]
  - Pulseless electrical activity [Recovered/Resolved]
  - Ventricular fibrillation [Recovered/Resolved]
  - Acute myocardial infarction [Recovered/Resolved]
  - Cardiac arrest [Recovered/Resolved]
